FAERS Safety Report 18139695 (Version 1)
Quarter: 2020Q3

REPORT INFORMATION
  Report Type: Spontaneous
  Country: IT (occurrence: IT)
  Receive Date: 20200812
  Receipt Date: 20200812
  Transmission Date: 20201103
  Serious: Yes (Hospitalization, Other)
  Sender: FDA-Public Use
  Company Number: IT-LEADINGPHARMA-IT-2020LEALIT00126

PATIENT
  Age: 18 Year
  Sex: Female

DRUGS (6)
  1. CARVEDILOL. [Suspect]
     Active Substance: CARVEDILOL
     Indication: ANGINA PECTORIS
     Route: 065
  2. SPIRONOLACTONE. [Suspect]
     Active Substance: SPIRONOLACTONE
     Indication: ANGINA PECTORIS
     Route: 065
  3. RANOLAZINE. [Interacting]
     Active Substance: RANOLAZINE
     Route: 065
  4. ASPRIN [Suspect]
     Active Substance: ASPIRIN
     Indication: ANGINA PECTORIS
     Route: 065
  5. FUROSEMIDE TABLETS USP [Suspect]
     Active Substance: FUROSEMIDE
     Indication: ANGINA PECTORIS
     Route: 065
  6. METOLAZONE. [Suspect]
     Active Substance: METOLAZONE
     Indication: ANGINA PECTORIS
     Route: 065

REACTIONS (1)
  - Angina pectoris [Recovering/Resolving]
